FAERS Safety Report 19397139 (Version 1)
Quarter: 2021Q2

REPORT INFORMATION
  Report Type: Spontaneous
  Country: US (occurrence: US)
  Receive Date: 20210609
  Receipt Date: 20210609
  Transmission Date: 20210717
  Serious: Yes (Hospitalization, Other)
  Sender: FDA-Public Use
  Company Number: US-ANIPHARMA-2021-US-010874

PATIENT
  Age: 65 Year
  Sex: Female

DRUGS (3)
  1. LISINOPRIL. [Concomitant]
     Active Substance: LISINOPRIL
  2. CHLORTHALIDONE (NON?SPECIFIC) [Suspect]
     Active Substance: CHLORTHALIDONE
     Indication: HYPERTENSION
  3. ATENOLOL. [Concomitant]
     Active Substance: ATENOLOL

REACTIONS (3)
  - Angle closure glaucoma [Recovered/Resolved]
  - Visual field defect [Not Recovered/Not Resolved]
  - Hyponatraemia [Recovered/Resolved]
